FAERS Safety Report 9939449 (Version 1)
Quarter: 2014Q1

REPORT INFORMATION
  Report Type: Report from Study
  Country: US (occurrence: US)
  Receive Date: 20140303
  Receipt Date: 20140303
  Transmission Date: 20141002
  Serious: No
  Sender: FDA-Public Use
  Company Number: US-ABBVIE-13P-163-1032678-00

PATIENT
  Age: 55 Year
  Sex: Female
  Weight: 77.18 kg

DRUGS (6)
  1. HUMIRA [Suspect]
     Indication: CROHN^S DISEASE
     Dates: start: 2008, end: 2008
  2. HUMIRA [Suspect]
  3. HUMIRA [Suspect]
  4. HUMIRA [Suspect]
  5. SEREVENT [Concomitant]
     Indication: ASTHMA
  6. CLARITIN [Concomitant]
     Indication: ASTHMA

REACTIONS (8)
  - Pruritus generalised [Not Recovered/Not Resolved]
  - Elbow deformity [Not Recovered/Not Resolved]
  - Genital rash [Not Recovered/Not Resolved]
  - Adverse event [Recovered/Resolved]
  - Drug ineffective [Not Recovered/Not Resolved]
  - Cough [Not Recovered/Not Resolved]
  - Injection site rash [Recovered/Resolved]
  - Pruritus genital [Not Recovered/Not Resolved]
